FAERS Safety Report 5786242-1 (Version None)
Quarter: 2008Q2

REPORT INFORMATION
  Report Type: 
  Country: None (occurrence: None)
  Receive Date: 20080624
  Receipt Date: 20070815
  Transmission Date: 20081010
  Serious: No
  Sender: FDA-Public Use
  Company Number: US-ASTRAZENECA-2007UW19671

PATIENT
  Age: 81 Year
  Sex: Female
  Weight: 104.3 kg

DRUGS (16)
  1. PULMICORT RESPULES [Suspect]
     Indication: CHRONIC OBSTRUCTIVE PULMONARY DISEASE
     Dosage: 0.5 MG BID
     Route: 055
  2. SYNTHROID [Concomitant]
  3. XOPENEX [Concomitant]
  4. FUROSEMIDE [Concomitant]
  5. POTASSIUM CHLORIDE [Concomitant]
  6. CALCIUM [Concomitant]
  7. CARDIZEM CD [Concomitant]
  8. GLYBURIDE [Concomitant]
  9. FORADIL [Concomitant]
  10. ACIPHEX [Concomitant]
  11. LIDODERM [Concomitant]
  12. VITAMIN D [Concomitant]
  13. ASPIRIN [Concomitant]
  14. VITAMIN CAP [Concomitant]
  15. VITAMIN B6 [Concomitant]
  16. VITAMIN B-12 [Concomitant]

REACTIONS (1)
  - ALOPECIA [None]
